FAERS Safety Report 20678940 (Version 4)
Quarter: 2022Q2

REPORT INFORMATION
  Report Type: Spontaneous
  Country: FR (occurrence: FR)
  Receive Date: 20220406
  Receipt Date: 20220510
  Transmission Date: 20220721
  Serious: Yes (Death, Hospitalization, Other)
  Sender: FDA-Public Use
  Company Number: None

PATIENT
  Age: 47 Year
  Sex: Male
  Weight: 85 kg

DRUGS (8)
  1. LOVENOX [Suspect]
     Active Substance: ENOXAPARIN SODIUM
     Indication: Thrombosis prophylaxis
     Dosage: 1 DF, QD
     Route: 058
     Dates: start: 20210809, end: 20210809
  2. HEPARIN SODIUM [Suspect]
     Active Substance: HEPARIN SODIUM
     Indication: Thrombosis prophylaxis
     Dosage: UNK
     Route: 042
     Dates: start: 20210810, end: 20210821
  3. INSULIN NOS [Concomitant]
     Active Substance: INSULIN NOS
  4. CISATRACURIUM [Concomitant]
     Active Substance: CISATRACURIUM
  5. PIPERACILLIN [Concomitant]
     Active Substance: PIPERACILLIN
  6. SUFENTANIL [Concomitant]
     Active Substance: SUFENTANIL
  7. TAZOBACTAM SODIUM [Concomitant]
     Active Substance: TAZOBACTAM SODIUM
  8. PROPOFOL [Concomitant]
     Active Substance: PROPOFOL

REACTIONS (2)
  - Pulmonary embolism [Fatal]
  - Heparin-induced thrombocytopenia [Fatal]

NARRATIVE: CASE EVENT DATE: 20210818
